FAERS Safety Report 5566350-0 (Version None)
Quarter: 2007Q4

REPORT INFORMATION
  Report Type: 
  Country: None (occurrence: None)
  Receive Date: 20071219
  Receipt Date: 20071213
  Transmission Date: 20080405
  Serious: Yes (Life-Threatening, Hospitalization)
  Sender: FDA-Public Use
  Company Number: FR-AMGEN-UK216153

PATIENT
  Age: 65 Year
  Sex: Male
  Weight: 65 kg

DRUGS (15)
  1. MIMPARA [Suspect]
     Indication: HYPERPARATHYROIDISM SECONDARY
     Route: 048
     Dates: start: 20060907, end: 20070301
  2. SKENAN [Concomitant]
     Route: 065
  3. DEDROGYL [Concomitant]
     Route: 065
  4. CALCIUM [Concomitant]
     Route: 065
  5. VASTAREL [Concomitant]
     Route: 065
  6. NOCTRAN 10 [Concomitant]
     Route: 065
  7. NEURONTIN [Concomitant]
     Route: 065
  8. PLAVIX [Concomitant]
     Route: 065
  9. LANTUS [Concomitant]
     Route: 065
  10. TENORMIN [Concomitant]
     Route: 065
  11. DAFALGAN [Concomitant]
     Route: 065
  12. TRIMEPRAZINE TAB [Concomitant]
     Route: 065
  13. TAHOR [Concomitant]
     Route: 065
  14. KARDEGIC [Concomitant]
  15. METEOSPASMYL [Concomitant]

REACTIONS (3)
  - CONVULSION [None]
  - LUNG DISORDER [None]
  - NEURALGIA [None]
